FAERS Safety Report 20409308 (Version 1)
Quarter: 2022Q1

REPORT INFORMATION
  Report Type: Spontaneous
  Country: US (occurrence: US)
  Receive Date: 20220201
  Receipt Date: 20220201
  Transmission Date: 20220424
  Serious: No
  Sender: FDA-Public Use
  Company Number: US-BAUSCH-BL-2022-002126

PATIENT
  Age: 65 Year
  Sex: Female

DRUGS (3)
  1. TOBRAMYCIN [Suspect]
     Active Substance: TOBRAMYCIN
     Indication: Lacrimation increased
     Dosage: 1 DROP IN BOTH EYES 3 TIMES DAILY
     Route: 047
     Dates: start: 20210401, end: 20211130
  2. TOBRAMYCIN [Suspect]
     Active Substance: TOBRAMYCIN
     Indication: Dry eye
  3. RETAINE CMC [Concomitant]
     Indication: Product used for unknown indication
     Dosage: RETAINE OCUSOFT DRY EYE RELIEF (PRESERVATIVE FREE)
     Route: 047
     Dates: start: 202104

REACTIONS (2)
  - Lacrimation increased [Unknown]
  - Condition aggravated [Unknown]

NARRATIVE: CASE EVENT DATE: 20210101
